FAERS Safety Report 9125909 (Version 1)
Quarter: 2013Q1

REPORT INFORMATION
  Report Type: Spontaneous
  Country: CH (occurrence: CH)
  Receive Date: 20130117
  Receipt Date: 20130117
  Transmission Date: 20140127
  Serious: Yes (Death, Hospitalization, Other)
  Sender: FDA-Public Use
  Company Number: CH-JNJFOC-20130104199

PATIENT
  Age: 66 Year
  Sex: Female
  Weight: 90 kg

DRUGS (3)
  1. SIMPONI [Suspect]
     Indication: ANKYLOSING SPONDYLITIS
     Route: 058
     Dates: start: 201101, end: 20121217
  2. METHOTREXATE [Suspect]
     Indication: ANKYLOSING SPONDYLITIS
     Route: 058
     Dates: start: 200610
  3. SPIRICORT [Suspect]
     Indication: ANKYLOSING SPONDYLITIS
     Route: 048

REACTIONS (2)
  - Sepsis [Fatal]
  - Multi-organ failure [Fatal]
